FAERS Safety Report 10089314 (Version 1)
Quarter: 2014Q2

REPORT INFORMATION
  Report Type: Spontaneous
  Country: US (occurrence: None)
  Receive Date: 20140418
  Receipt Date: 20140418
  Transmission Date: 20141212
  Serious: No
  Sender: FDA-Public Use
  Company Number: None

PATIENT
  Age: 45 Year
  Sex: Female
  Weight: 47.63 kg

DRUGS (4)
  1. LAMOTRIGINE 150 MG TAROP [Suspect]
     Indication: MAJOR DEPRESSION
     Dates: start: 20091210
  2. PARITTE [Concomitant]
  3. NEURONTIN [Concomitant]
  4. TRILARON [Concomitant]

REACTIONS (1)
  - Swollen tongue [None]
